FAERS Safety Report 21962363 (Version 1)
Quarter: 2023Q1

REPORT INFORMATION
  Report Type: Report from Study
  Country: US (occurrence: US)
  Receive Date: 20230207
  Receipt Date: 20230207
  Transmission Date: 20230418
  Serious: No
  Sender: FDA-Public Use
  Company Number: US-ORG100014127-2022000052

PATIENT
  Age: 13 Year
  Sex: Female

DRUGS (1)
  1. LYSODREN [Suspect]
     Active Substance: MITOTANE
     Indication: Adrenal disorder
     Dosage: 01 TABLET THREE TIMES DAILY
     Route: 048
     Dates: start: 20211221

REACTIONS (3)
  - Weight decreased [Not Recovered/Not Resolved]
  - Somnolence [Unknown]
  - Fatigue [Unknown]

NARRATIVE: CASE EVENT DATE: 20211221
